FAERS Safety Report 18253879 (Version 1)
Quarter: 2020Q3

REPORT INFORMATION
  Report Type: Spontaneous
  Country: US (occurrence: US)
  Receive Date: 20200910
  Receipt Date: 20200910
  Transmission Date: 20201103
  Serious: Yes (Other)
  Sender: FDA-Public Use
  Company Number: US-PFIZER INC-2020348041

PATIENT
  Sex: Female

DRUGS (2)
  1. XANAX [Suspect]
     Active Substance: ALPRAZOLAM
     Dosage: UNK (240 2 MG)
  2. OXYCODONE [Suspect]
     Active Substance: OXYCODONE
     Dosage: UNK (280 30MG)

REACTIONS (1)
  - Dependence [Unknown]
